FAERS Safety Report 25531646 (Version 2)
Quarter: 2025Q3

REPORT INFORMATION
  Report Type: Report from Study
  Country: US (occurrence: US)
  Receive Date: 20250709
  Receipt Date: 20250820
  Transmission Date: 20251021
  Serious: Yes (Other)
  Sender: MALLINCKRODT
  Company Number: US-MALLINCKRODT-MNK202504080

PATIENT
  Sex: Female

DRUGS (3)
  1. CORTICOTROPIN [Suspect]
     Active Substance: CORTICOTROPIN
     Indication: Ocular pemphigoid
  2. CORTICOTROPIN [Suspect]
     Active Substance: CORTICOTROPIN
  3. CORTICOTROPIN [Suspect]
     Active Substance: CORTICOTROPIN

REACTIONS (6)
  - Upper respiratory tract infection [Unknown]
  - Bronchitis [Unknown]
  - Eye irritation [Recovered/Resolved]
  - Blood glucose increased [Unknown]
  - Infection [Unknown]
  - Fatigue [Unknown]
